FAERS Safety Report 16953101 (Version 3)
Quarter: 2020Q1

REPORT INFORMATION
  Report Type: Report from Study
  Country: JP (occurrence: JP)
  Receive Date: 20191023
  Receipt Date: 20200327
  Transmission Date: 20200409
  Serious: Yes (Life-Threatening, Hospitalization)
  Sender: FDA-Public Use
  Company Number: JP-REGENERON PHARMACEUTICALS, INC.-2019-60666

PATIENT

DRUGS (6)
  1. CEMIPLIMAB [Suspect]
     Active Substance: CEMIPLIMAB
     Indication: CERVIX CARCINOMA
     Dosage: 350 MG, Q3W
     Route: 042
     Dates: start: 20190925, end: 20190925
  2. MAGNESIUM OXIDE. [Concomitant]
     Active Substance: MAGNESIUM OXIDE
     Indication: CONSTIPATION
     Dosage: 660 MG, TID
     Route: 048
     Dates: start: 20181015
  3. GOSHAJINKIGAN [Concomitant]
     Active Substance: HERBALS
     Indication: OEDEMA PERIPHERAL
     Dosage: 2.5 G, TID
     Route: 048
     Dates: start: 20190827
  4. CARBAZOCHROME SODIUM SULFONATE TRIHYDRATE [Concomitant]
     Indication: HAEMATURIA
     Dosage: 30 MG, TID
     Route: 048
     Dates: start: 20190902, end: 20191015
  5. TRAMADOL HYDROCHLORIDE. [Concomitant]
     Active Substance: TRAMADOL HYDROCHLORIDE
     Indication: BACK PAIN
     Dosage: 100 MG, QD
     Route: 048
     Dates: start: 20190926, end: 20191027
  6. ACETAMINOPHEN. [Concomitant]
     Active Substance: ACETAMINOPHEN
     Indication: BACK PAIN
     Dosage: 300 MG, TID
     Route: 048
     Dates: start: 20190902

REACTIONS (1)
  - Hepatic function abnormal [Recovering/Resolving]

NARRATIVE: CASE EVENT DATE: 20191015
